FAERS Safety Report 24105142 (Version 1)
Quarter: 2024Q3

REPORT INFORMATION
  Report Type: Spontaneous
  Country: FR (occurrence: FR)
  Receive Date: 20240717
  Receipt Date: 20240717
  Transmission Date: 20241016
  Serious: Yes (Hospitalization, Other)
  Sender: PFIZER
  Company Number: None

PATIENT
  Age: 65 Year
  Sex: Male
  Weight: 70 kg

DRUGS (11)
  1. ADCETRIS [Suspect]
     Active Substance: BRENTUXIMAB VEDOTIN
     Indication: Hodgkin^s disease
     Dosage: 85 MILLIGRAM
     Route: 065
     Dates: start: 20230404, end: 20230404
  2. ADCETRIS [Suspect]
     Active Substance: BRENTUXIMAB VEDOTIN
     Dosage: 80 MILLIGRAM
     Route: 065
     Dates: start: 20230427, end: 20230427
  3. DACARBAZINE [Suspect]
     Active Substance: DACARBAZINE
     Indication: Hodgkin^s disease
     Dosage: 700 MILLIGRAM
     Route: 065
     Dates: start: 20230404, end: 20230404
  4. DACARBAZINE [Suspect]
     Active Substance: DACARBAZINE
     Dosage: 680 MILLIGRAM
     Route: 065
     Dates: start: 20230427, end: 20230427
  5. DOXORUBICIN [Suspect]
     Active Substance: DOXORUBICIN
     Indication: Hodgkin^s disease
     Dosage: 46 MILLIGRAM
     Route: 065
     Dates: start: 20230404, end: 20230404
  6. DOXORUBICIN [Suspect]
     Active Substance: DOXORUBICIN
     Dosage: 46 MILLIGRAM
     Route: 065
     Dates: start: 20230427, end: 20230427
  7. VINBLASTINE SULFATE [Suspect]
     Active Substance: VINBLASTINE SULFATE
     Indication: Hodgkin^s disease
     Dosage: 11 MILLIGRAM
     Route: 065
     Dates: start: 20230404, end: 20230404
  8. VINBLASTINE SULFATE [Suspect]
     Active Substance: VINBLASTINE SULFATE
     Dosage: 11 MILLIGRAM
     Route: 065
     Dates: start: 20230427, end: 20230427
  9. BIKTARVY [Concomitant]
     Active Substance: BICTEGRAVIR SODIUM\EMTRICITABINE\TENOFOVIR ALAFENAMIDE FUMARATE
     Dosage: UNK UNK, QD
     Route: 065
  10. SIMVASTATIN [Concomitant]
     Active Substance: SIMVASTATIN
     Dosage: 20 MILLIGRAM, QD
     Route: 065
  11. TAMSULOSIN HYDROCHLORIDE [Concomitant]
     Active Substance: TAMSULOSIN HYDROCHLORIDE
     Dosage: 0.4 MILLIGRAM, QD
     Route: 065

REACTIONS (1)
  - Colitis ulcerative [Recovering/Resolving]

NARRATIVE: CASE EVENT DATE: 20230401
